FAERS Safety Report 8554799-3 (Version None)
Quarter: 2012Q3

REPORT INFORMATION
  Report Type: 
  Country: None (occurrence: None)
  Receive Date: 20120731
  Receipt Date: 20120726
  Transmission Date: 20120928
  Serious: Yes (Death, Hospitalization)
  Sender: FDA-Public Use
  Company Number: US-ACTELION-A-US2012-69380

PATIENT
  Age: 85 Year
  Sex: Male

DRUGS (2)
  1. COUMADIN [Concomitant]
  2. VENTAVIS [Suspect]
     Indication: PULMONARY ARTERIAL HYPERTENSION
     Route: 055

REACTIONS (3)
  - HIP SURGERY [None]
  - DEATH [None]
  - HIP FRACTURE [None]
